FAERS Safety Report 6932233-4 (Version None)
Quarter: 2010Q3

REPORT INFORMATION
  Report Type: 
  Country: None (occurrence: None)
  Receive Date: 20100819
  Receipt Date: 20100809
  Transmission Date: 20110219
  Serious: Yes (Other)
  Sender: FDA-Public Use
  Company Number: US-PFIZER INC-2010100603

PATIENT
  Sex: Female
  Weight: 62 kg

DRUGS (1)
  1. AROMASIN [Suspect]
     Indication: BREAST CANCER STAGE IV
     Dosage: 25 MG, DAILY
     Route: 048
     Dates: start: 20091230, end: 20100806

REACTIONS (3)
  - CARBOHYDRATE ANTIGEN 27.29 INCREASED [None]
  - CARCINOEMBRYONIC ANTIGEN INCREASED [None]
  - DRUG INEFFECTIVE [None]
